FAERS Safety Report 4735002-9 (Version None)
Quarter: 2005Q3

REPORT INFORMATION
  Report Type: 
  Country: None (occurrence: None)
  Receive Date: 20050804
  Receipt Date: 20050714
  Transmission Date: 20060218
  Serious: Yes (Other)
  Sender: FDA-Public Use
  Company Number: US_0411107568

PATIENT
  Age: 31 Year
  Sex: Female

DRUGS (25)
  1. ZYPREXA [Suspect]
     Indication: OBSESSIVE-COMPULSIVE DISORDER
     Dosage: 15 MG
     Route: 048
     Dates: start: 19990401, end: 20040201
  2. DILANTIN                        (PHENYTOIN 00017401/) [Concomitant]
  3. ZOLMITRIPTAN [Concomitant]
  4. ZITHROMAX [Concomitant]
  5. ATORVASTATIN CALCIUM [Concomitant]
  6. PAROXETINE HCL [Concomitant]
  7. ZESTRIL       (LISINOPRIL /00894001/) [Concomitant]
  8. MAXZIDE [Concomitant]
  9. GLUCOPHAGE            (METFORMIN /00082701/) [Concomitant]
  10. CHLORPHENIRAMINE MALEATE [Concomitant]
  11. NORVASC [Concomitant]
  12. SEROQUEL [Concomitant]
  13. NEURONTIN [Concomitant]
  14. PAXIL [Concomitant]
  15. VISTARIL [Concomitant]
  16. TYLENOL (CAPLET) [Concomitant]
  17. MOTRIN [Concomitant]
  18. ALBUTEROL [Concomitant]
  19. BENADRYL [Concomitant]
  20. COGENTIN [Concomitant]
  21. CYTOMEL [Concomitant]
  22. SONATA [Concomitant]
  23. LEVAQUIN [Concomitant]
  24. REMERON [Concomitant]
  25. ATIVAN [Concomitant]

REACTIONS (30)
  - ASTHENIA [None]
  - BILIARY TRACT DISORDER [None]
  - BLOOD ALKALINE PHOSPHATASE INCREASED [None]
  - BLOOD CHOLESTEROL ABNORMAL [None]
  - BLOOD TRIGLYCERIDES INCREASED [None]
  - CONDITION AGGRAVATED [None]
  - DIABETES MELLITUS NON-INSULIN-DEPENDENT [None]
  - DIZZINESS [None]
  - DYSURIA [None]
  - FACE OEDEMA [None]
  - FLUID RETENTION [None]
  - GLYCOSURIA [None]
  - HEPATIC STEATOSIS [None]
  - HYPERGLYCAEMIA [None]
  - HYPERPHAGIA [None]
  - HYPERTENSION [None]
  - KETONURIA [None]
  - MICROALBUMINURIA [None]
  - MYOCARDIAL ISCHAEMIA [None]
  - NEUROPATHY PERIPHERAL [None]
  - OBESITY [None]
  - OEDEMA [None]
  - POLYDIPSIA [None]
  - PROTEINURIA [None]
  - RENAL FAILURE ACUTE [None]
  - RETINOPATHY [None]
  - URINE OUTPUT DECREASED [None]
  - VAGINAL INFECTION [None]
  - VENOUS INSUFFICIENCY [None]
  - VISION BLURRED [None]
